FAERS Safety Report 4652501-9 (Version None)
Quarter: 2005Q2

REPORT INFORMATION
  Report Type: 
  Country: None (occurrence: None)
  Receive Date: 20050504
  Receipt Date: 20050425
  Transmission Date: 20051028
  Serious: Yes (Hospitalization)
  Sender: FDA-Public Use
  Company Number: DE-NOVOPROD-243815

PATIENT
  Age: 52 Year
  Sex: Female

DRUGS (1)
  1. ACTIVELLE [Suspect]
     Indication: ILL-DEFINED DISORDER
     Dosage: UNK, UNK
     Route: 048
     Dates: start: 20040601, end: 20050201

REACTIONS (6)
  - ACUTE MYOCARDIAL INFARCTION [None]
  - ANGINA PECTORIS [None]
  - AORTIC VALVE INCOMPETENCE [None]
  - MITRAL VALVE INCOMPETENCE [None]
  - SUPRAVENTRICULAR EXTRASYSTOLES [None]
  - VENTRICULAR EXTRASYSTOLES [None]
